FAERS Safety Report 6091178-5 (Version None)
Quarter: 2009Q1

REPORT INFORMATION
  Report Type: 
  Country: None (occurrence: None)
  Receive Date: 20090223
  Receipt Date: 20090223
  Transmission Date: 20090719
  Serious: No
  Sender: FDA-Public Use
  Company Number: None

PATIENT
  Age: 61 Year
  Sex: Female
  Weight: 61.2356 kg

DRUGS (2)
  1. BUSPIRONE HCL [Suspect]
     Indication: MEDICATION ERROR
     Dosage: #60  1 TWICE A-DAY PO  (MED ERROR)
     Route: 048
     Dates: start: 20090211, end: 20090220
  2. BUSPIRONE HCL [Suspect]
     Indication: DEPRESSION
     Dosage: #60  1 TWICE A DAY PO  (CORRECT MED)
     Route: 048
     Dates: start: 20040211, end: 20090220

REACTIONS (2)
  - INTERCEPTED DRUG DISPENSING ERROR [None]
  - MEDICATION ERROR [None]
